FAERS Safety Report 9148515 (Version 1)
Quarter: 2013Q1

REPORT INFORMATION
  Report Type: Spontaneous
  Country: US (occurrence: US)
  Receive Date: 20130308
  Receipt Date: 20130308
  Transmission Date: 20140127
  Serious: No
  Sender: FDA-Public Use
  Company Number: US-009507513-1303USA003525

PATIENT
  Sex: 0

DRUGS (1)
  1. EMEND FOR INJECTION [Suspect]
     Dosage: 150 MG, QD
     Route: 042
     Dates: start: 20130304

REACTIONS (3)
  - Drug prescribing error [Unknown]
  - Inappropriate schedule of drug administration [Unknown]
  - No adverse event [Unknown]
